FAERS Safety Report 6456050-7 (Version None)
Quarter: 2009Q4

REPORT INFORMATION
  Report Type: 
  Country: None (occurrence: None)
  Receive Date: 20091125
  Receipt Date: 20091116
  Transmission Date: 20100525
  Serious: Yes (Other)
  Sender: FDA-Public Use
  Company Number: US-JNJFOC-20090405064

PATIENT
  Sex: Female
  Weight: 77.11 kg

DRUGS (1)
  1. LEVAQUIN [Suspect]
     Indication: PNEUMONIA
     Route: 065

REACTIONS (5)
  - DRUG INEFFECTIVE [None]
  - RASH PRURITIC [None]
  - SKIN BURNING SENSATION [None]
  - URTICARIA [None]
  - VULVOVAGINAL MYCOTIC INFECTION [None]
